FAERS Safety Report 7777099-8 (Version None)
Quarter: 2011Q3

REPORT INFORMATION
  Report Type: 
  Country: None (occurrence: None)
  Receive Date: 20110926
  Receipt Date: 20110922
  Transmission Date: 20111222
  Serious: Yes (Other)
  Sender: FDA-Public Use
  Company Number: US-BRISTOL-MYERS SQUIBB COMPANY-16088619

PATIENT
  Age: 70 Year
  Sex: Female

DRUGS (4)
  1. LAMICTAL [Suspect]
     Indication: BIPOLAR DISORDER
  2. AMBIEN [Concomitant]
  3. ARTANE [Concomitant]
  4. ABILIFY [Suspect]
     Indication: BIPOLAR DISORDER
     Dosage: INCREASED TO 20 MG

REACTIONS (5)
  - IRRITABILITY [None]
  - ROAD TRAFFIC ACCIDENT [None]
  - AGGRESSION [None]
  - AMNESIA [None]
  - TARDIVE DYSKINESIA [None]
